FAERS Safety Report 5885632-6 (Version None)
Quarter: 2008Q3

REPORT INFORMATION
  Report Type: 
  Country: None (occurrence: None)
  Receive Date: 20080912
  Receipt Date: 20080904
  Transmission Date: 20090109
  Serious: Yes (Other)
  Sender: FDA-Public Use
  Company Number: GXKR2008DE08591

PATIENT
  Sex: Female

DRUGS (1)
  1. LOPEDIUM AKUT BEI AKUTEM DURCHFAL (NGX) (LOPERAMIDE) CAPSULE [Suspect]

REACTIONS (1)
  - INTENTIONAL DRUG MISUSE [None]
